FAERS Safety Report 15557360 (Version 7)
Quarter: 2018Q4

REPORT INFORMATION
  Report Type: Spontaneous
  Country: JP (occurrence: JP)
  Receive Date: 20181026
  Receipt Date: 20181227
  Transmission Date: 20190205
  Serious: Yes (Other)
  Sender: FDA-Public Use
  Company Number: JP-ALLERGAN-1850707US

PATIENT
  Sex: Male

DRUGS (2)
  1. NOCBIN [Concomitant]
     Active Substance: DISULFIRAM
     Indication: ALCOHOLISM
     Dosage: UNK
     Route: 048
     Dates: end: 20181013
  2. ACAMPROSATE CALCIUM - BP [Suspect]
     Active Substance: ACAMPROSATE CALCIUM
     Indication: ALCOHOLISM
     Dosage: 1998 MG, QD
     Route: 048
     Dates: end: 20181013

REACTIONS (2)
  - Pruritus generalised [Recovered/Resolved]
  - Liver function test abnormal [Recovered/Resolved]
